FAERS Safety Report 9155832 (Version 7)
Quarter: 2014Q1

REPORT INFORMATION
  Report Type: Spontaneous
  Country: US (occurrence: US)
  Receive Date: 20130311
  Receipt Date: 20140109
  Transmission Date: 20141002
  Serious: Yes (Hospitalization, Other)
  Sender: FDA-Public Use
  Company Number: US-009507513-1303USA003909

PATIENT
  Sex: Female
  Weight: 79.37 kg

DRUGS (4)
  1. FOSAMAX [Suspect]
     Indication: OSTEOPOROSIS
     Dosage: 70 MG, WEEKLY
     Route: 048
     Dates: start: 20030428, end: 20070504
  2. FOSAMAX [Suspect]
     Dosage: 10 MG, DAILY
     Route: 048
     Dates: start: 19951019
  3. FLONASE [Concomitant]
     Indication: RHINITIS ALLERGIC
     Dosage: 50 MCG/DOSE 1-2 SPRAYS EACH NOSTRIL HS
  4. TYLENOL ALLERGY SINUS [Concomitant]
     Indication: RHINITIS ALLERGIC
     Dosage: UNK, BID

REACTIONS (67)
  - Intramedullary rod insertion [Unknown]
  - Removal of internal fixation [Unknown]
  - Spinal laminectomy [Unknown]
  - Intervertebral disc operation [Unknown]
  - Eyelid ptosis [Unknown]
  - Hypoacusis [Unknown]
  - Femur fracture [Recovering/Resolving]
  - Low turnover osteopathy [Unknown]
  - Upper-airway cough syndrome [Unknown]
  - Bronchitis [Unknown]
  - Cough [Not Recovered/Not Resolved]
  - Menorrhagia [Unknown]
  - Insomnia [Unknown]
  - Kyphosis [Unknown]
  - Compression fracture [Unknown]
  - Chronic obstructive pulmonary disease [Not Recovered/Not Resolved]
  - Essential hypertension [Unknown]
  - Diverticulitis [Unknown]
  - Osteoarthritis [Unknown]
  - Pain [Not Recovered/Not Resolved]
  - Emphysema [Unknown]
  - Asthma [Not Recovered/Not Resolved]
  - Cervical myelopathy [Unknown]
  - Chest pain [Unknown]
  - Defaecation urgency [Unknown]
  - Vulvovaginal pruritus [Not Recovered/Not Resolved]
  - Vaccination complication [Unknown]
  - Body height decreased [Unknown]
  - Fall [Unknown]
  - Chest pain [Unknown]
  - Heart valve incompetence [Unknown]
  - Contusion [Unknown]
  - Device failure [Unknown]
  - Weight decreased [Unknown]
  - Extrasystoles [Unknown]
  - Dyspnoea exertional [Unknown]
  - Herpes zoster [Unknown]
  - Dementia Alzheimer^s type [Unknown]
  - Cataract [Unknown]
  - Foot fracture [Unknown]
  - Cataract operation [Unknown]
  - Ankle fracture [Unknown]
  - Hair growth abnormal [Unknown]
  - Haemoglobin abnormal [Recovered/Resolved]
  - Fracture nonunion [Unknown]
  - Sinus headache [Unknown]
  - Fall [Unknown]
  - Skin neoplasm excision [Unknown]
  - Scarlet fever [Unknown]
  - Osteosclerosis [Unknown]
  - Weight decreased [Unknown]
  - Chest pain [Unknown]
  - Osteopenia [Unknown]
  - Bone deformity [Unknown]
  - Asthenia [Unknown]
  - Asthenia [Unknown]
  - Headache [Unknown]
  - Myalgia [Unknown]
  - Gastritis [Unknown]
  - Muscle spasms [Unknown]
  - Gastrooesophageal reflux disease [Not Recovered/Not Resolved]
  - Dizziness [Unknown]
  - Drug ineffective [Unknown]
  - Diarrhoea [Unknown]
  - Oedema peripheral [Unknown]
  - Bone pain [Unknown]
  - Constipation [Unknown]
